FAERS Safety Report 12687947 (Version 1)
Quarter: 2016Q3

REPORT INFORMATION
  Report Type: Report from Study
  Country: DE (occurrence: DE)
  Receive Date: 20160826
  Receipt Date: 20160826
  Transmission Date: 20161109
  Serious: Yes (Death, Other)
  Sender: FDA-Public Use
  Company Number: DE-ROCHE-1820247

PATIENT
  Age: 16 Year
  Sex: Male

DRUGS (2)
  1. ALTEPLASE [Suspect]
     Active Substance: ALTEPLASE
     Indication: ISCHAEMIC STROKE
     Route: 065
  2. PHENPROCOUMON [Concomitant]
     Active Substance: PHENPROCOUMON
     Indication: EMBOLIC STROKE
     Route: 048

REACTIONS (5)
  - Sepsis [Fatal]
  - Congestive cardiomyopathy [Unknown]
  - Off label use [Fatal]
  - Pneumonia [Fatal]
  - Cardiac failure [Fatal]
